FAERS Safety Report 5991960-6 (Version None)
Quarter: 2008Q4

REPORT INFORMATION
  Report Type: 
  Country: None (occurrence: None)
  Receive Date: 20081211
  Receipt Date: 20081203
  Transmission Date: 20090506
  Serious: Yes (Life-Threatening, Hospitalization, Other)
  Sender: FDA-Public Use
  Company Number: FR-B.I. PHARMACEUTICALS,INC./RIDGEFIELD-2008-DE-07417GD

PATIENT
  Sex: Female

DRUGS (10)
  1. NEVIRAPINE [Suspect]
     Indication: HIV INFECTION
     Dates: start: 20000601
  2. ZIDOVUDINE [Suspect]
     Indication: HIV INFECTION
     Dates: start: 19951001
  3. LAMIVUDINE [Suspect]
     Indication: HIV INFECTION
     Dates: start: 19951001
  4. DIDANOSINE [Suspect]
     Indication: HIV INFECTION
     Dates: start: 20000601
  5. STAVUDINE [Suspect]
     Indication: HIV INFECTION
     Dates: start: 20000601
  6. EFAVIRENZ [Suspect]
     Indication: HIV INFECTION
     Dates: start: 20000101
  7. ZALCITABINE [Suspect]
     Indication: HIV INFECTION
     Dates: start: 20030101
  8. ABACAVIR [Suspect]
     Indication: HIV INFECTION
     Dates: start: 20030101
  9. LOPINAVIR AND RITONAVIR [Suspect]
     Indication: HIV INFECTION
     Dates: start: 20030101
  10. TENOFOVIR [Suspect]
     Indication: HIV INFECTION

REACTIONS (5)
  - HYPERSENSITIVITY [None]
  - NODULAR REGENERATIVE HYPERPLASIA [None]
  - OESOPHAGEAL VARICES HAEMORRHAGE [None]
  - PORTAL VEIN THROMBOSIS [None]
  - VARICES OESOPHAGEAL [None]
